FAERS Safety Report 15145732 (Version 2)
Quarter: 2018Q3

REPORT INFORMATION
  Report Type: Report from Study
  Country: None (occurrence: CO)
  Receive Date: 20180714
  Receipt Date: 20180821
  Transmission Date: 20181010
  Serious: Yes (Other)
  Sender: FDA-Public Use
  Company Number: CO-ABBVIE-17K-036-2122580-00

PATIENT
  Age: 55 Year
  Sex: Male

DRUGS (1)
  1. HUMIRA [Suspect]
     Active Substance: ADALIMUMAB
     Indication: PSORIASIS
     Route: 058
     Dates: start: 20140820, end: 20170520

REACTIONS (9)
  - Skin ulcer [Unknown]
  - Dermatitis [Unknown]
  - Pulmonary granuloma [Unknown]
  - Drug ineffective [Not Recovered/Not Resolved]
  - Pulmonary calcification [Unknown]
  - Wound haemorrhage [Unknown]
  - Psoriasis [Not Recovered/Not Resolved]
  - Rash [Unknown]
  - Back pain [Unknown]

NARRATIVE: CASE EVENT DATE: 20170712
